FAERS Safety Report 14968311 (Version 1)
Quarter: 2018Q2

REPORT INFORMATION
  Report Type: Spontaneous
  Country: US (occurrence: US)
  Receive Date: 20180511
  Receipt Date: 20180511
  Transmission Date: 20180711
  Serious: Yes (Hospitalization)
  Sender: FDA-Public Use
  Company Number: None

PATIENT
  Age: 41 Year
  Sex: Male

DRUGS (5)
  1. VITAMIN -D [Concomitant]
  2. TRAMADOL. [Concomitant]
     Active Substance: TRAMADOL
  3. SMZ/TMP DS [Concomitant]
     Active Substance: SULFAMETHOXAZOLE\TRIMETHOPRIM
  4. MUPIROCIN. [Concomitant]
     Active Substance: MUPIROCIN
  5. ENBREL [Suspect]
     Active Substance: ETANERCEPT
     Indication: PSORIATIC ARTHROPATHY
     Route: 058
     Dates: start: 20150213

REACTIONS (2)
  - Drug dose omission [None]
  - Hip arthroplasty [None]
